FAERS Safety Report 12664079 (Version 1)
Quarter: 2016Q3

REPORT INFORMATION
  Report Type: Spontaneous
  Country: US (occurrence: US)
  Receive Date: 20160818
  Receipt Date: 20160818
  Transmission Date: 20161109
  Serious: No
  Sender: FDA-Public Use
  Company Number: US-GLAXOSMITHKLINE-CHPA2012US011686

PATIENT
  Sex: Male

DRUGS (2)
  1. TRANSDERM SCOP [Suspect]
     Active Substance: SCOPOLAMINE
     Indication: MOTION SICKNESS
     Dosage: UNK DF, UNK
     Route: 062
     Dates: start: 20120114
  2. TRANSDERM SCOP [Suspect]
     Active Substance: SCOPOLAMINE
     Dosage: 1 DF, QD
     Route: 065
     Dates: start: 2015, end: 2015

REACTIONS (6)
  - Drug ineffective [Unknown]
  - Vomiting [Recovered/Resolved]
  - Vomiting [Recovered/Resolved]
  - Disorientation [Recovered/Resolved]
  - Dry mouth [Recovered/Resolved]
  - Malaise [Recovered/Resolved]

NARRATIVE: CASE EVENT DATE: 20120114
